FAERS Safety Report 22935292 (Version 2)
Quarter: 2023Q4

REPORT INFORMATION
  Report Type: Spontaneous
  Country: BR (occurrence: BR)
  Receive Date: 20230912
  Receipt Date: 20231013
  Transmission Date: 20240110
  Serious: Yes (Hospitalization, Other)
  Sender: FDA-Public Use
  Company Number: BR-BoehringerIngelheim-2023-BI-259534

PATIENT
  Sex: Female

DRUGS (13)
  1. SPIRIVA [Suspect]
     Active Substance: TIOTROPIUM BROMIDE MONOHYDRATE
     Indication: Asthma
     Dosage: SPIRIVA RESPIMAT 2,5MCG - 2 PUFFS IN THE MORNING AND 2 PUFFS AT NIGHT
     Route: 055
     Dates: start: 2018, end: 20230819
  2. SPIRIVA [Suspect]
     Active Substance: TIOTROPIUM BROMIDE MONOHYDRATE
     Indication: Asthma
  3. BEROTEC [Suspect]
     Active Substance: FENOTEROL HYDROBROMIDE
     Indication: Secretion discharge
  4. ALENIA [Concomitant]
     Indication: Asthma
     Route: 055
     Dates: start: 2013, end: 202308
  5. ALENIA [Concomitant]
     Indication: Asthma
  6. ALENIA [Concomitant]
     Indication: Dyspnoea
  7. CLOPIDOGREL [Concomitant]
     Active Substance: CLOPIDOGREL BISULFATE
     Indication: Cardiac disorder
     Dosage: 1X A DAY AFTER LUNCH
     Route: 048
     Dates: start: 2019
  8. TRIMETAZIDINE [Concomitant]
     Active Substance: TRIMETAZIDINE
     Indication: Cardiac disorder
     Dosage: 1 TABLET IN THE MORNING AND 1 TABLET AT NIGHT
     Route: 048
     Dates: start: 2019
  9. TRIMETAZIDINE [Concomitant]
     Active Substance: TRIMETAZIDINE
     Indication: Varicose vein
  10. NEBIVOLOL [Concomitant]
     Active Substance: NEBIVOLOL
     Indication: Cardiac disorder
     Dosage: 1 TABLET IN THE MORNING
     Route: 048
     Dates: start: 2019
  11. NEBIVOLOL [Concomitant]
     Active Substance: NEBIVOLOL
     Indication: Varicose vein
  12. ASPIRINA CARDIO [Concomitant]
     Indication: Cardiovascular disorder
     Route: 048
     Dates: start: 2019
  13. ASPIRINA CARDIO [Concomitant]
     Indication: Varicose vein

REACTIONS (11)
  - Respiratory failure [Recovered/Resolved]
  - Respiratory failure [Unknown]
  - Dyspnoea [Unknown]
  - Product prescribing error [Recovered/Resolved]
  - Drug ineffective [Unknown]
  - Wrong technique in product usage process [Unknown]
  - Secretion discharge [Unknown]
  - Lung disorder [Unknown]
  - Dyspnoea [Unknown]
  - Dyspnoea exertional [Unknown]
  - Intentional product use issue [Unknown]

NARRATIVE: CASE EVENT DATE: 20180101
